FAERS Safety Report 15094677 (Version 1)
Quarter: 2018Q3

REPORT INFORMATION
  Report Type: Spontaneous
  Country: US (occurrence: US)
  Receive Date: 20180701
  Receipt Date: 20180701
  Transmission Date: 20181010
  Serious: No
  Sender: FDA-Public Use
  Company Number: US-IPSEN BIOPHARMACEUTICALS, INC.-2018-08383

PATIENT
  Age: 62 Year
  Sex: Female

DRUGS (2)
  1. DYSPORT [Suspect]
     Active Substance: ABOBOTULINUMTOXINA
     Indication: SKIN WRINKLING
  2. DYSPORT [Suspect]
     Active Substance: ABOBOTULINUMTOXINA
     Indication: SKIN WRINKLING
     Dosage: 30 UNITS
     Route: 065
     Dates: start: 20180518, end: 20180518

REACTIONS (9)
  - Hypersensitivity [Not Recovered/Not Resolved]
  - Pruritus [Not Recovered/Not Resolved]
  - Skin exfoliation [Not Recovered/Not Resolved]
  - Erythema [Not Recovered/Not Resolved]
  - Mass [Not Recovered/Not Resolved]
  - Rash pustular [Not Recovered/Not Resolved]
  - Scab [Not Recovered/Not Resolved]
  - Rash [Not Recovered/Not Resolved]
  - Dermatitis contact [Not Recovered/Not Resolved]

NARRATIVE: CASE EVENT DATE: 201805
